FAERS Safety Report 11609656 (Version 1)
Quarter: 2015Q4

REPORT INFORMATION
  Report Type: Spontaneous
  Country: US (occurrence: US)
  Receive Date: 20151007
  Receipt Date: 20151007
  Transmission Date: 20160304
  Serious: Yes (Hospitalization, Other)
  Sender: FDA-Public Use
  Company Number: US-DSJP-DSU-2015-118057

PATIENT

DRUGS (5)
  1. BENICAR [Suspect]
     Active Substance: OLMESARTAN MEDOXOMIL
     Indication: HYPERTENSION
     Dosage: 40 MG, UNK
     Route: 048
     Dates: start: 20140311, end: 20140318
  2. BENICAR [Suspect]
     Active Substance: OLMESARTAN MEDOXOMIL
     Dosage: 40 MG, SINGLE
     Route: 048
     Dates: start: 20140329, end: 20140329
  3. BENICAR HCT [Suspect]
     Active Substance: HYDROCHLOROTHIAZIDE\OLMESARTAN MEDOXOMIL
     Indication: HYPERTENSION
     Dosage: 40/12.5 MG, UNK
     Route: 048
     Dates: start: 20070124, end: 20140404
  4. BENICAR HCT [Suspect]
     Active Substance: HYDROCHLOROTHIAZIDE\OLMESARTAN MEDOXOMIL
     Dosage: 40.12 MG, UNK
     Route: 048
     Dates: start: 201403, end: 20140404
  5. TOPAMAX [Suspect]
     Active Substance: TOPIRAMATE
     Indication: NEURALGIA
     Dosage: 100 MG, UNK
     Route: 048
     Dates: start: 201403

REACTIONS (18)
  - Hypokalaemia [Recovered/Resolved]
  - Hepatitis [Unknown]
  - Haemorrhoids [Unknown]
  - Acute kidney injury [Unknown]
  - Diverticulum intestinal [Unknown]
  - Hiatus hernia [Unknown]
  - Hypophosphataemia [Unknown]
  - Bile duct stone [Unknown]
  - Cholelithiasis [Unknown]
  - Ileal ulcer [Unknown]
  - Colon adenoma [Unknown]
  - Deep vein thrombosis [Unknown]
  - Hypomagnesaemia [Recovered/Resolved]
  - Renal cyst [Unknown]
  - Hypoalbuminaemia [Unknown]
  - Malabsorption [Unknown]
  - Haemangioma of liver [Unknown]
  - Large intestine polyp [Recovered/Resolved]

NARRATIVE: CASE EVENT DATE: 20100423
